FAERS Safety Report 5823108-2 (Version None)
Quarter: 2008Q3

REPORT INFORMATION
  Report Type: 
  Country: None (occurrence: None)
  Receive Date: 20080725
  Receipt Date: 20070719
  Transmission Date: 20090109
  Serious: No
  Sender: FDA-Public Use
  Company Number: US-AMGEN-KDL235172

PATIENT
  Sex: Female

DRUGS (2)
  1. PROCRIT [Suspect]
     Indication: ANAEMIA
     Route: 058
     Dates: start: 20061201, end: 20070628
  2. UNSPECIFIED MEDICATION [Concomitant]

REACTIONS (5)
  - FATIGUE [None]
  - FEELING HOT [None]
  - INJECTION SITE EXFOLIATION [None]
  - INJECTION SITE IRRITATION [None]
  - NAUSEA [None]
